FAERS Safety Report 4675411-X (Version None)
Quarter: 2005Q2

REPORT INFORMATION
  Report Type: 
  Country: None (occurrence: None)
  Receive Date: 20050527
  Receipt Date: 20050228
  Transmission Date: 20051028
  Serious: Yes (Other)
  Sender: FDA-Public Use
  Company Number: US-BRISTOL-MYERS SQUIBB COMPANY-12879193

PATIENT
  Age: 57 Year
  Sex: Female
  Weight: 48 kg

DRUGS (4)
  1. ABILIFY [Suspect]
     Indication: SUICIDAL IDEATION
     Dates: start: 20050227
  2. ABILIFY [Suspect]
     Indication: DEPRESSION
     Dates: start: 20050227
  3. LEXAPRO [Concomitant]
  4. TYLENOL W/ CODEINE [Concomitant]

REACTIONS (5)
  - HYPERVIGILANCE [None]
  - MUSCLE TWITCHING [None]
  - POLLAKIURIA [None]
  - SUICIDAL IDEATION [None]
  - VOMITING [None]
